FAERS Safety Report 6171503-7 (Version None)
Quarter: 2009Q2

REPORT INFORMATION
  Report Type: 
  Country: None (occurrence: None)
  Receive Date: 20090429
  Receipt Date: 20090424
  Transmission Date: 20091009
  Serious: Yes (Other)
  Sender: FDA-Public Use
  Company Number: PL-ASTRAZENECA-2009SE01616

PATIENT
  Age: 18 Year
  Sex: Male
  Weight: 52 kg

DRUGS (1)
  1. SYMBICORT [Suspect]
     Indication: ASTHMA
     Dosage: 160 / 4.5 UG
     Route: 055
     Dates: start: 20090401, end: 20090403

REACTIONS (2)
  - ANXIETY [None]
  - PALPITATIONS [None]
